FAERS Safety Report 7576079-5 (Version None)
Quarter: 2011Q2

REPORT INFORMATION
  Report Type: 
  Country: None (occurrence: None)
  Receive Date: 20110628
  Receipt Date: 20110613
  Transmission Date: 20111010
  Serious: Yes (Other)
  Sender: FDA-Public Use
  Company Number: US-BAYER-2011-051240

PATIENT
  Sex: Female

DRUGS (3)
  1. MIRENA [Suspect]
     Indication: PRODUCT USED FOR UNKNOWN INDICATION
  2. TOPAMAX [Concomitant]
     Indication: MIGRAINE
  3. TOPAMAX [Concomitant]
     Indication: AFFECTIVE DISORDER

REACTIONS (1)
  - BIPOLAR DISORDER [None]
